FAERS Safety Report 8482781-3 (Version None)
Quarter: 2012Q3

REPORT INFORMATION
  Report Type: 
  Country: None (occurrence: None)
  Receive Date: 20120702
  Receipt Date: 20120627
  Transmission Date: 20120928
  Serious: Yes (Other)
  Sender: FDA-Public Use
  Company Number: PHHY2012FR055444

PATIENT
  Age: 58 Year
  Sex: Female

DRUGS (7)
  1. ATORVASTATIN [Suspect]
  2. DARBEPOETIN ALFA [Concomitant]
  3. FUROSEMIDE [Concomitant]
  4. TROXERUTIN [Concomitant]
  5. LOSARTAN POTASSIUM [Concomitant]
  6. SIROLIMUS [Interacting]
     Indication: IMMUNOSUPPRESSION
     Dosage: UNK
     Dates: start: 20021001, end: 20070801
  7. OMEPRAZOLE [Concomitant]

REACTIONS (4)
  - COUGH [None]
  - DRUG INTERACTION [None]
  - PNEUMONITIS [None]
  - DYSPNOEA EXERTIONAL [None]
